FAERS Safety Report 24638427 (Version 1)
Quarter: 2024Q4

REPORT INFORMATION
  Report Type: Spontaneous
  Country: CN (occurrence: CN)
  Receive Date: 20241119
  Receipt Date: 20241119
  Transmission Date: 20250114
  Serious: Yes (Other)
  Sender: NOVARTIS
  Company Number: CN-002147023-NVSC2024CN220420

PATIENT
  Age: 84 Year
  Sex: Male
  Weight: 60 kg

DRUGS (6)
  1. TEGRETOL [Suspect]
     Active Substance: CARBAMAZEPINE
     Indication: Trigeminal neuralgia
     Dosage: 0.1 G, QD (100 MG)
     Route: 048
     Dates: start: 20121101, end: 20221011
  2. TEGRETOL [Suspect]
     Active Substance: CARBAMAZEPINE
     Indication: Lipid metabolism disorder
     Dosage: 400 MG, QD
     Route: 048
     Dates: start: 20241012, end: 20241013
  3. TEGRETOL [Suspect]
     Active Substance: CARBAMAZEPINE
     Indication: Blood pressure decreased
     Dosage: 200 MG, QD
     Route: 065
     Dates: start: 20241014, end: 20241014
  4. TEGRETOL [Suspect]
     Active Substance: CARBAMAZEPINE
     Indication: Antiplatelet therapy
  5. TEGRETOL [Suspect]
     Active Substance: CARBAMAZEPINE
     Indication: Muscle spasms
  6. TEGRETOL [Suspect]
     Active Substance: CARBAMAZEPINE
     Indication: Asthma

REACTIONS (15)
  - Pleural effusion [Recovering/Resolving]
  - Carotid artery disease [Unknown]
  - Coloboma [Unknown]
  - Pericardial effusion [Unknown]
  - Hydrothorax [Unknown]
  - Hypertension [Unknown]
  - Insomnia [Unknown]
  - Chronic gastritis [Unknown]
  - Respiratory tract infection [Unknown]
  - Lung opacity [Unknown]
  - Blood albumin decreased [Unknown]
  - Fibrin D dimer increased [Unknown]
  - Tachypnoea [Recovering/Resolving]
  - Hyperhidrosis [Unknown]
  - Dizziness [Unknown]

NARRATIVE: CASE EVENT DATE: 20241012
